FAERS Safety Report 8299241-5 (Version None)
Quarter: 2012Q2

REPORT INFORMATION
  Report Type: 
  Country: None (occurrence: None)
  Receive Date: 20120419
  Receipt Date: 20120413
  Transmission Date: 20120825
  Serious: No
  Sender: FDA-Public Use
  Company Number: US-PFIZER INC-2012026729

PATIENT
  Sex: Male
  Weight: 104 kg

DRUGS (12)
  1. LIPITOR [Suspect]
     Indication: BLOOD CHOLESTEROL INCREASED
     Dosage: 40 MG, DAILY
     Route: 048
     Dates: start: 20111001
  2. TRAZODONE [Concomitant]
     Dosage: 100 MG, UNK
  3. AMIODARONE [Concomitant]
     Dosage: UNK
  4. ZESTRIL [Concomitant]
     Dosage: UNK
  5. COREG [Concomitant]
     Dosage: UNK
  6. NOVOLOG [Concomitant]
     Dosage: UNK
  7. ALLOPURINOL [Concomitant]
     Dosage: UNK
  8. MAG-OX [Concomitant]
     Dosage: UNK
  9. PACERONE [Concomitant]
     Dosage: 200 MG, UNK
  10. LISINOPRIL [Concomitant]
     Dosage: 10 MG, UNK
  11. PRILOSEC [Concomitant]
     Dosage: UNK
  12. LANTUS [Concomitant]
     Dosage: UNK

REACTIONS (2)
  - NERVOUS SYSTEM DISORDER [None]
  - MEMORY IMPAIRMENT [None]
